FAERS Safety Report 24273643 (Version 1)
Quarter: 2024Q3

REPORT INFORMATION
  Report Type: Spontaneous
  Country: US (occurrence: US)
  Receive Date: 20240902
  Receipt Date: 20240902
  Transmission Date: 20241017
  Serious: No
  Sender: ASTELLAS
  Company Number: US-ASTELLAS-2024US016662

PATIENT
  Age: 86 Year
  Sex: Male

DRUGS (1)
  1. XTANDI [Suspect]
     Active Substance: ENZALUTAMIDE
     Indication: Prostate cancer metastatic
     Dosage: 80 MG, ONCE DAILY
     Route: 065
     Dates: start: 20240605

REACTIONS (2)
  - Balance disorder [Unknown]
  - Underdose [Unknown]

NARRATIVE: CASE EVENT DATE: 20240605
